FAERS Safety Report 4778484-9 (Version None)
Quarter: 2005Q3

REPORT INFORMATION
  Report Type: 
  Country: None (occurrence: None)
  Receive Date: 20050923
  Receipt Date: 20050923
  Transmission Date: 20060218
  Serious: Yes (Other)
  Sender: FDA-Public Use
  Company Number: None

PATIENT
  Sex: Female
  Weight: 52.1637 kg

DRUGS (2)
  1. GAMUNEX [Suspect]
     Indication: MYASTHENIA GRAVIS
     Dosage: 44 GRAMS DAILY FOR 2 DAY EVERY 2 WEEKS IV
     Route: 042
     Dates: start: 20050824, end: 20050824
  2. GAMUNEX [Suspect]
     Indication: MYASTHENIA GRAVIS
     Dosage: 44 GRAMS DAILY FOR 2 DAY EVERY 2 WEEKS IV
     Route: 042
     Dates: start: 20050823, end: 20050823

REACTIONS (4)
  - HEADACHE [None]
  - INFUSION RELATED REACTION [None]
  - NAUSEA [None]
  - PHARMACEUTICAL PRODUCT COMPLAINT [None]
